FAERS Safety Report 11294723 (Version 1)
Quarter: 2015Q3

REPORT INFORMATION
  Report Type: Spontaneous
  Country: US (occurrence: None)
  Receive Date: 20150722
  Receipt Date: 20150722
  Transmission Date: 20151125
  Serious: Yes (Other)
  Sender: FDA-Public Use
  Company Number: None

PATIENT
  Age: 33 Year
  Sex: Male
  Weight: 108.86 kg

DRUGS (1)
  1. DEXAMETHASONE. [Suspect]
     Active Substance: DEXAMETHASONE
     Indication: SINUSITIS
     Dosage: 51 TABS STEP DOWN PO
     Route: 048
     Dates: start: 20150609

REACTIONS (4)
  - Anxiety [None]
  - Dyspnoea [None]
  - Impaired work ability [None]
  - Irritability [None]

NARRATIVE: CASE EVENT DATE: 20150618
